FAERS Safety Report 6394483-8 (Version None)
Quarter: 2009Q4

REPORT INFORMATION
  Report Type: 
  Country: None (occurrence: None)
  Receive Date: 20091009
  Receipt Date: 20090929
  Transmission Date: 20100525
  Serious: Yes (Death, Congenital Anomaly, Other)
  Sender: FDA-Public Use
  Company Number: FR-ABBOTT-09P-056-0599460-00

PATIENT
  Sex: Female

DRUGS (2)
  1. KALETRA [Suspect]
     Indication: DRUG EXPOSURE DURING PREGNANCY
  2. TRUVADA [Suspect]
     Indication: DRUG EXPOSURE DURING PREGNANCY

REACTIONS (4)
  - BRAIN HERNIATION [None]
  - DILATATION VENTRICULAR [None]
  - DRUG EXPOSURE DURING PREGNANCY [None]
  - SPINA BIFIDA [None]
